FAERS Safety Report 18627121 (Version 1)
Quarter: 2020Q4

REPORT INFORMATION
  Report Type: Other
  Country: RO (occurrence: RO)
  Receive Date: 20201217
  Receipt Date: 20201217
  Transmission Date: 20210114
  Serious: Yes (Hospitalization, Other)
  Sender: FDA-Public Use
  Company Number: RO-NUVO PHARMACEUTICALS INC-2103105

PATIENT

DRUGS (4)
  1. VALPROIC ACID. [Suspect]
     Active Substance: VALPROIC ACID
     Route: 065
  2. SERTRALINE [Suspect]
     Active Substance: SERTRALINE HYDROCHLORIDE
     Route: 065
  3. DIAZEPAM. [Suspect]
     Active Substance: DIAZEPAM
     Indication: PRODUCT USED FOR UNKNOWN INDICATION
     Route: 065
  4. ALCOHOL. [Suspect]
     Active Substance: ALCOHOL
     Route: 065

REACTIONS (6)
  - Toxicity to various agents [Unknown]
  - Hepatotoxicity [Unknown]
  - Suicide attempt [Unknown]
  - Intentional overdose [Unknown]
  - Thrombocytopenia [Unknown]
  - Pancreatitis acute [Unknown]
